FAERS Safety Report 10843651 (Version 2)
Quarter: 2015Q1

REPORT INFORMATION
  Report Type: Spontaneous
  Country: US (occurrence: US)
  Receive Date: 20150220
  Receipt Date: 20150224
  Transmission Date: 20150721
  Serious: No
  Sender: FDA-Public Use
  Company Number: US-009507513-1502USA005180

PATIENT
  Age: 46 Year
  Sex: Female

DRUGS (3)
  1. SINGULAIR [Suspect]
     Active Substance: MONTELUKAST SODIUM
     Indication: SEASONAL ALLERGY
  2. LEVOTHYROXINE SODIUM. [Concomitant]
     Active Substance: LEVOTHYROXINE SODIUM
     Dosage: UNK
     Dates: start: 200402
  3. SINGULAIR [Suspect]
     Active Substance: MONTELUKAST SODIUM
     Indication: ASTHMA
     Dosage: 10 MG, QD
     Route: 048
     Dates: start: 200402, end: 20140529

REACTIONS (8)
  - Skin infection [Not Recovered/Not Resolved]
  - Rectal perforation [Not Recovered/Not Resolved]
  - Immunosuppression [Not Recovered/Not Resolved]
  - Escherichia infection [Not Recovered/Not Resolved]
  - Infection [Not Recovered/Not Resolved]
  - Urinary tract infection [Not Recovered/Not Resolved]
  - Acarodermatitis [Not Recovered/Not Resolved]
  - Incorrect drug administration duration [Unknown]

NARRATIVE: CASE EVENT DATE: 200402
